FAERS Safety Report 5171326-1 (Version None)
Quarter: 2006Q4

REPORT INFORMATION
  Report Type: 
  Country: None (occurrence: None)
  Receive Date: 20061213
  Receipt Date: 20060206
  Transmission Date: 20070319
  Serious: Yes (Hospitalization, Other)
  Sender: FDA-Public Use
  Company Number: US-AMGEN-US167702

PATIENT
  Sex: Male
  Weight: 94.4 kg

DRUGS (12)
  1. ENBREL [Suspect]
     Indication: PSORIATIC ARTHROPATHY
     Dates: start: 20040521
  2. ENBREL [Suspect]
     Indication: PSORIASIS
  3. METHOTREXATE [Concomitant]
     Dates: start: 20040107
  4. FOLIC ACID [Concomitant]
     Dates: start: 20040107
  5. VITAMIN CAP [Concomitant]
     Dates: start: 20040107
  6. VITAMIN C AND E [Concomitant]
     Dates: start: 20040107
  7. FLAX SEED OIL [Concomitant]
     Dates: start: 20040107
  8. NEXIUM [Concomitant]
     Dates: start: 20040107
  9. EFFEXOR [Concomitant]
     Dates: start: 20040107
  10. ANTIVERT [Concomitant]
     Dates: start: 20050328
  11. COUMADIN [Concomitant]
     Dates: start: 20060109
  12. PREDNISONE TAB [Concomitant]

REACTIONS (1)
  - DEEP VEIN THROMBOSIS [None]
